FAERS Safety Report 7833029-1 (Version None)
Quarter: 2011Q4

REPORT INFORMATION
  Report Type: 
  Country: None (occurrence: None)
  Receive Date: 20111024
  Receipt Date: 20111013
  Transmission Date: 20120403
  Serious: Yes (Death, Other)
  Sender: FDA-Public Use
  Company Number: AR-BAYER-2011-078701

PATIENT
  Age: 61 Year
  Sex: Male
  Weight: 69 kg

DRUGS (9)
  1. PREGABALIN [Concomitant]
     Dosage: UNK
  2. IBUPROFEN [Concomitant]
     Indication: BONE PAIN
     Dosage: 1200 MG, QD
     Route: 048
     Dates: start: 20110220, end: 20110720
  3. DEXPROPOXIFEN NOS [Concomitant]
     Dosage: 270 MG, QD
     Route: 048
     Dates: start: 20110420, end: 20110822
  4. NEXAVAR [Suspect]
     Indication: METASTATIC RENAL CELL CARCINOMA
     Dosage: 400 MG, BID
     Route: 048
     Dates: start: 20110820, end: 20110821
  5. CIPROFLOXACIN [Concomitant]
     Indication: URINARY TRACT INFECTION
     Dosage: UNK UNK, QD
     Dates: start: 20110720, end: 20110727
  6. NEXAVAR [Suspect]
     Dosage: 200 MG, BID
     Route: 048
     Dates: start: 20110822, end: 20110826
  7. DIAZEPAM [Concomitant]
     Dosage: UNK
  8. RED BLOOD CELLS [Concomitant]
     Dosage: 2 U, UNK
     Dates: start: 20110824
  9. SUPRAGESIC [Concomitant]
     Indication: METASTASES TO BONE
     Dosage: UNK
     Route: 048
     Dates: start: 20110817, end: 20110826

REACTIONS (6)
  - HEPATIC FAILURE [None]
  - SENSORY DISTURBANCE [None]
  - JAUNDICE [None]
  - DYSPNOEA [None]
  - PNEUMONIA [None]
  - FATIGUE [None]
